FAERS Safety Report 8509748-0 (Version None)
Quarter: 2012Q3

REPORT INFORMATION
  Report Type: 
  Country: None (occurrence: None)
  Receive Date: 20120713
  Receipt Date: 20120702
  Transmission Date: 20120928
  Serious: Yes (Death, Life-Threatening, Hospitalization)
  Sender: FDA-Public Use
  Company Number: TW-BAYER-2012-065243

PATIENT
  Age: 74 Year
  Sex: Male
  Weight: 76 kg

DRUGS (16)
  1. NEXAVAR [Suspect]
     Indication: HEPATIC NEOPLASM MALIGNANT
     Dosage: DAILY DOSE 800 MG
     Route: 048
     Dates: start: 20100205, end: 20100215
  2. ISOPTIN [Concomitant]
     Dosage: UNK
     Dates: start: 20100211, end: 20100215
  3. PLACEBO [Suspect]
     Indication: HEPATIC NEOPLASM MALIGNANT
     Dosage: UNK
     Route: 048
     Dates: start: 20100205, end: 20100215
  4. HYTRIN [Concomitant]
     Dosage: UNK
     Dates: start: 20100204, end: 20100215
  5. CELEBREX [Concomitant]
     Dosage: UNK
     Dates: start: 20100211, end: 20100221
  6. ACYCLOVIR [Concomitant]
     Dosage: UNK
     Dates: start: 19991201
  7. ENALAPRIL MALEATE [Concomitant]
     Dosage: UNK
     Dates: start: 20100118, end: 20100210
  8. DILTIAZEM HCL [Concomitant]
     Dosage: UNK
     Dates: start: 20100211, end: 20100211
  9. ENTECAVIR [Concomitant]
     Dosage: UNK
     Dates: start: 19980101, end: 20100210
  10. PRIMPERAN TAB [Concomitant]
     Dosage: UNK
     Dates: start: 20100201, end: 20100225
  11. MEDROXYPROGESTERONE ACETATE [Concomitant]
     Dosage: UNK
     Dates: start: 20100204, end: 20100221
  12. TRAMADOL HYDROCHLORIDE [Concomitant]
     Dosage: UNK
     Dates: start: 20100211
  13. TAMSULOSIN HCL [Concomitant]
     Dosage: UNK
     Dates: start: 20100201, end: 20100203
  14. MAGNESIUM OXIDE [Concomitant]
     Dosage: UNK
     Dates: start: 20100211, end: 20100221
  15. XYZAL [Concomitant]
     Dosage: UNK
     Dates: start: 20100211, end: 20100221
  16. THIAMINE [Concomitant]
     Dosage: UNK
     Dates: start: 19991226, end: 20100118

REACTIONS (7)
  - RHABDOMYOLYSIS [None]
  - LOWER GASTROINTESTINAL HAEMORRHAGE [None]
  - FATIGUE [None]
  - RENAL FAILURE [None]
  - PNEUMONIA ASPIRATION [None]
  - SEPTIC SHOCK [None]
  - DISSEMINATED INTRAVASCULAR COAGULATION [None]
